FAERS Safety Report 18024421 (Version 1)
Quarter: 2020Q3

REPORT INFORMATION
  Report Type: Spontaneous
  Country: US (occurrence: US)
  Receive Date: 20200714
  Receipt Date: 20200714
  Transmission Date: 20201103
  Serious: No
  Sender: FDA-Public Use
  Company Number: None

PATIENT
  Sex: Female

DRUGS (1)
  1. ALPRAZOLAM. [Suspect]
     Active Substance: ALPRAZOLAM
     Route: 048
     Dates: start: 20190803, end: 20190816

REACTIONS (11)
  - Ataxia [None]
  - Affect lability [None]
  - Abnormal behaviour [None]
  - Disinhibition [None]
  - Toxicity to various agents [None]
  - Dysarthria [None]
  - Memory impairment [None]
  - Delirium [None]
  - Gait disturbance [None]
  - Disease recurrence [None]
  - Confusional state [None]

NARRATIVE: CASE EVENT DATE: 20190815
